FAERS Safety Report 10412381 (Version 3)
Quarter: 2014Q4

REPORT INFORMATION
  Report Type: Report from Study
  Country: JP (occurrence: JP)
  Receive Date: 20140827
  Receipt Date: 20141013
  Transmission Date: 20150528
  Serious: Yes (Hospitalization, Other)
  Sender: FDA-Public Use
  Company Number: JP-SHIRE-ALL1-2013-02323

PATIENT
  Age: 58 Year
  Sex: Male

DRUGS (44)
  1. OXAROL [Concomitant]
     Active Substance: MAXACALCITOL
     Dosage: 20 ?G, 1X/WEEK
     Route: 042
     Dates: start: 20100421, end: 20100816
  2. DOPS [Concomitant]
     Active Substance: DROXIDOPA
     Dosage: 600 MG, OTHER (WEEKLY, UNSPECIFIED FREQUENCY)
     Route: 048
  3. RENAGEL [Concomitant]
     Active Substance: SEVELAMER HYDROCHLORIDE
     Dosage: 1500 MG, UNKNOWN
     Route: 048
     Dates: start: 20110919, end: 20111016
  4. 405 (LANTHANUM CARBONATE) [Suspect]
     Active Substance: LANTHANUM CARBONATE
     Dosage: 1000 MG, UNKNOWN
     Route: 048
     Dates: start: 20120305, end: 20130318
  5. OXAROL [Concomitant]
     Active Substance: MAXACALCITOL
     Dosage: 2.5 ?G, 1X/WEEK
     Route: 042
     Dates: start: 20130408, end: 20130715
  6. GASTER [Concomitant]
     Active Substance: FAMOTIDINE
     Indication: PRODUCT USED FOR UNKNOWN INDICATION
     Dosage: 10 MG, UNKNOWN
     Route: 048
  7. CALTAN [Concomitant]
     Active Substance: CALCIUM CARBONATE
     Dosage: 1000 MG, UNKNOWN
     Dates: start: 20091023, end: 20110121
  8. 405 (LANTHANUM CARBONATE) [Suspect]
     Active Substance: LANTHANUM CARBONATE
     Indication: HYPERPHOSPHATAEMIA
     Dosage: 250 MG, UNKNOWN
     Route: 048
     Dates: start: 20120521
  9. 405 (LANTHANUM CARBONATE) [Suspect]
     Active Substance: LANTHANUM CARBONATE
     Dosage: 500 MG, UNKNOWN
     Route: 048
     Dates: start: 20120319, end: 20120520
  10. OXAROL [Concomitant]
     Active Substance: MAXACALCITOL
     Dosage: 10 ?G, 1X/WEEK
     Route: 042
     Dates: start: 20091223, end: 20100420
  11. OXAROL [Concomitant]
     Active Substance: MAXACALCITOL
     Dosage: 10 ?G, 1X/WEEK
     Route: 042
     Dates: start: 20110803, end: 20120701
  12. SENNOSIDE                          /00571901/ [Concomitant]
     Active Substance: SENNOSIDES A AND B
     Indication: PRODUCT USED FOR UNKNOWN INDICATION
     Dosage: 72 MG, UNKNOWN
     Route: 048
  13. HERBAL EXTRACT NOS [Concomitant]
     Active Substance: HERBALS
     Indication: PRODUCT USED FOR UNKNOWN INDICATION
     Dosage: 30 DF, UNKNOWN
     Route: 048
  14. TERNELIN [Concomitant]
     Active Substance: TIZANIDINE
     Indication: PRODUCT USED FOR UNKNOWN INDICATION
     Dosage: 3 MG, UNKNOWN
     Route: 048
  15. RENAGEL [Concomitant]
     Active Substance: SEVELAMER HYDROCHLORIDE
     Dosage: 800 MG, UNKNOWN
     Route: 048
     Dates: start: 20110729, end: 20110918
  16. 405 (LANTHANUM CARBONATE) [Suspect]
     Active Substance: LANTHANUM CARBONATE
     Dosage: 750 MG, UNKNOWN
     Route: 048
     Dates: start: 20090911, end: 20091207
  17. OXAROL [Concomitant]
     Active Substance: MAXACALCITOL
     Dosage: 5 ?G, 1X/WEEK
     Route: 042
     Dates: start: 20090608, end: 20090817
  18. OXAROL [Concomitant]
     Active Substance: MAXACALCITOL
     Dosage: 5 ?G, 1X/WEEK
     Route: 042
     Dates: start: 20101006, end: 20110620
  19. METHYCOBAL [Concomitant]
     Active Substance: METHYLCOBALAMIN
     Indication: PRODUCT USED FOR UNKNOWN INDICATION
     Dosage: 1500 ?G, UNKNOWN
     Route: 048
  20. RENAGEL [Concomitant]
     Active Substance: SEVELAMER HYDROCHLORIDE
     Dosage: 750 MG, UNKNOWN
     Route: 048
     Dates: start: 20100423, end: 20100513
  21. OXAROL [Concomitant]
     Active Substance: MAXACALCITOL
     Indication: PRODUCT USED FOR UNKNOWN INDICATION
     Dosage: 10 ?G, 1X/WEEK
     Route: 042
     Dates: start: 20090529, end: 20090605
  22. OXAROL [Concomitant]
     Active Substance: MAXACALCITOL
     Dosage: 5 ?G, 1X/WEEK
     Route: 042
     Dates: start: 20091021, end: 20091222
  23. OXAROL [Concomitant]
     Active Substance: MAXACALCITOL
     Dosage: 15 ?G, 1X/WEEK
     Route: 042
     Dates: start: 20100818, end: 20101004
  24. OXAROL [Concomitant]
     Active Substance: MAXACALCITOL
     Dosage: 5 ?G, 1X/WEEK
     Route: 042
     Dates: start: 20120702, end: 20140401
  25. DOPS [Concomitant]
     Active Substance: DROXIDOPA
     Dosage: 200 MG, OTHER (WEEKLY, UNSPECIFIED FREQUENCY)
     Route: 048
  26. MUCOSTA [Concomitant]
     Active Substance: REBAMIPIDE
     Indication: PRODUCT USED FOR UNKNOWN INDICATION
     Dosage: 300 MG, UNKNOWN
     Route: 048
  27. BERIZYM                            /01945301/ [Concomitant]
     Indication: PRODUCT USED FOR UNKNOWN INDICATION
     Dosage: 1.5 G, UNKNOWN
     Route: 048
  28. NITRODERM [Concomitant]
     Active Substance: NITROGLYCERIN
     Indication: PRODUCT USED FOR UNKNOWN INDICATION
     Dosage: 1 DF, UNKNOWN
     Route: 062
  29. RENAGEL [Concomitant]
     Active Substance: SEVELAMER HYDROCHLORIDE
     Dosage: 750 MG, UNKNOWN
     Route: 048
     Dates: start: 20111017, end: 20111205
  30. PLETAAL [Suspect]
     Active Substance: CILOSTAZOL
     Indication: PRODUCT USED FOR UNKNOWN INDICATION
     Dosage: 200 MG, UNKNOWN
     Route: 048
     Dates: start: 20120406, end: 201209
  31. 405 (LANTHANUM CARBONATE) [Suspect]
     Active Substance: LANTHANUM CARBONATE
     Dosage: 1500 MG, UNKNOWN
     Route: 048
     Dates: start: 20091209, end: 20110804
  32. 405 (LANTHANUM CARBONATE) [Suspect]
     Active Substance: LANTHANUM CARBONATE
     Dosage: 1500 MG, UNKNOWN
     Route: 048
     Dates: start: 20111219, end: 20120304
  33. OXAROL [Concomitant]
     Active Substance: MAXACALCITOL
     Dosage: 10 ?G, 1X/WEEK
     Route: 042
     Dates: start: 20090819, end: 20091019
  34. OXAROL [Concomitant]
     Active Substance: MAXACALCITOL
     Dosage: 15 ?G, 1X/WEEK
     Route: 042
     Dates: start: 20110622, end: 20110801
  35. DOPS [Concomitant]
     Active Substance: DROXIDOPA
     Indication: ORTHOSTATIC HYPOTENSION
     Dosage: 400 MG, UNKNOWN (A WEEK, UNSPECIFIED FREQUENCY)
     Route: 048
  36. ZYLORIC [Concomitant]
     Active Substance: ALLOPURINOL
     Indication: PRODUCT USED FOR UNKNOWN INDICATION
     Dosage: 300 MG, 1X/WEEK
     Route: 048
  37. CALTAN [Concomitant]
     Active Substance: CALCIUM CARBONATE
     Indication: HYPERPHOSPHATAEMIA
     Dosage: 1500 MG, UNKNOWN
     Route: 048
     Dates: start: 20090529, end: 20091022
  38. RENAGEL [Concomitant]
     Active Substance: SEVELAMER HYDROCHLORIDE
     Dosage: 1500 MG, UNKNOWN
     Route: 048
     Dates: start: 20100514, end: 20110728
  39. REGPARA [Concomitant]
     Active Substance: CINACALCET HYDROCHLORIDE
     Indication: HYPERPARATHYROIDISM SECONDARY
     Dosage: 25 MG, UNKNOWN
     Route: 048
     Dates: start: 20101117, end: 20120125
  40. 405 (LANTHANUM CARBONATE) [Suspect]
     Active Substance: LANTHANUM CARBONATE
     Dosage: 1500 MG, UNKNOWN
     Route: 048
     Dates: start: 20090529, end: 20090910
  41. 405 (LANTHANUM CARBONATE) [Suspect]
     Active Substance: LANTHANUM CARBONATE
     Dosage: 1000 MG, UNKNOWN
     Route: 048
     Dates: start: 20110805, end: 20111218
  42. PROCYLIN [Concomitant]
     Active Substance: BERAPROST SODIUM
     Indication: PRODUCT USED FOR UNKNOWN INDICATION
     Dosage: 120 ?G, UNKNOWN
     Route: 048
  43. RENAGEL [Concomitant]
     Active Substance: SEVELAMER HYDROCHLORIDE
     Indication: HYPERPHOSPHATAEMIA
     Dosage: 2250 MG, UNKNOWN
     Route: 048
     Dates: start: 20090529, end: 20090617
  44. RENAGEL [Concomitant]
     Active Substance: SEVELAMER HYDROCHLORIDE
     Dosage: 2250 MG, UNKNOWN
     Route: 048
     Dates: start: 20100220, end: 20100421

REACTIONS (2)
  - Cardiac tamponade [Recovered/Resolved]
  - Hypotension [Unknown]

NARRATIVE: CASE EVENT DATE: 20120905
